FAERS Safety Report 4672487-0 (Version None)
Quarter: 2005Q2

REPORT INFORMATION
  Report Type: 
  Country: None (occurrence: None)
  Receive Date: 20050524
  Receipt Date: 20050518
  Transmission Date: 20051028
  Serious: Yes (Death, Other)
  Sender: FDA-Public Use
  Company Number: PHBS2005DE07186

PATIENT
  Age: 33 Year
  Sex: Female

DRUGS (3)
  1. CORTICOSTEROIDS [Concomitant]
     Route: 048
  2. ANAESTHETICS FOR TOPICAL USE [Concomitant]
  3. CYCLOSPORINE [Suspect]
     Indication: BONE MARROW TRANSPLANT

REACTIONS (21)
  - CALCINOSIS [None]
  - CATARACT [None]
  - CATARACT OPERATION [None]
  - CORNEAL DEFECT [None]
  - CORNEAL DEGENERATION [None]
  - CORNEAL DEPOSITS [None]
  - CORNEAL PERFORATION [None]
  - CORNEAL TRANSPLANT [None]
  - DESCEMET'S MEMBRANE DISORDER [None]
  - GASTROENTERITIS [None]
  - GRAFT VERSUS HOST DISEASE [None]
  - HEPATIC ENZYME INCREASED [None]
  - KERATITIS [None]
  - KERATITIS FUNGAL [None]
  - LENS IMPLANT [None]
  - LYMPHOPENIA [None]
  - MULTI-ORGAN FAILURE [None]
  - PNEUMONITIS [None]
  - SEPTIC SHOCK [None]
  - TRANSPLANT FAILURE [None]
  - VISUAL ACUITY REDUCED [None]
